FAERS Safety Report 16286585 (Version 1)
Quarter: 2019Q2

REPORT INFORMATION
  Report Type: Spontaneous
  Country: US (occurrence: US)
  Receive Date: 20190507
  Receipt Date: 20190507
  Transmission Date: 20190711
  Serious: Yes (Hospitalization)
  Sender: FDA-Public Use
  Company Number: None

PATIENT
  Age: 64 Year
  Sex: Male
  Weight: 89.7 kg

DRUGS (15)
  1. APIXABAN [Suspect]
     Active Substance: APIXABAN
     Indication: EMBOLIC STROKE
     Route: 048
     Dates: start: 20160102, end: 20190505
  2. AMIODARONE 200MG PO Q24 [Concomitant]
     Dates: start: 20170718, end: 20190507
  3. NORCO 10-325 MG Q8PRN [Concomitant]
  4. ERGOCALCIFEROL 50,000 UNITS  PO QMONTH [Concomitant]
  5. ASPIRIN 81MG PO Q24 [Concomitant]
     Dates: start: 20170410, end: 20190507
  6. CINACALCET 60MG PO QHS [Concomitant]
     Dates: start: 20151119, end: 20190507
  7. NPH-REGULAR 70/30 5-10 UN [Concomitant]
  8. LIRAGLUTIDE 1.2 MG SC Q24 [Concomitant]
  9. OMEPRAZOLE 20MG PO Q24 [Concomitant]
  10. LISINOPRIL 20MG PO Q24 [Concomitant]
  11. APIXABAN [Suspect]
     Active Substance: APIXABAN
     Indication: ATRIAL FLUTTER
     Route: 048
     Dates: start: 20160102, end: 20190505
  12. DIPHENHYDRAMINE 25MG PO QHSPRN [Concomitant]
  13. LOVAZA 2G PO BID [Concomitant]
  14. PRAVASTATIN 40MG PO QHS [Concomitant]
  15. B COMPLEX-C-FOLIC ACID 1 PO Q24 [Concomitant]

REACTIONS (1)
  - Arteriovenous fistula site haemorrhage [None]

NARRATIVE: CASE EVENT DATE: 20190505
